FAERS Safety Report 21492318 (Version 3)
Quarter: 2022Q4

REPORT INFORMATION
  Report Type: Spontaneous
  Country: SE (occurrence: SE)
  Receive Date: 20221021
  Receipt Date: 20221228
  Transmission Date: 20230112
  Serious: Yes (Hospitalization)
  Sender: FDA-Public Use
  Company Number: SE-MYLANLABS-2022M1111623

PATIENT
  Sex: Female

DRUGS (17)
  1. OLANZAPINE [Suspect]
     Active Substance: OLANZAPINE
     Indication: Bipolar disorder
     Dosage: 375 MILLIGRAM, (??-APR-2022)
     Route: 065
  2. OLANZAPINE [Suspect]
     Active Substance: OLANZAPINE
     Indication: Psychotic disorder
     Dosage: 1200 MILLIGRAM
     Route: 065
  3. OLANZAPINE [Suspect]
     Active Substance: OLANZAPINE
     Dosage: 10 MILLIGRAM
     Route: 065
     Dates: end: 202111
  4. OLANZAPINE [Suspect]
     Active Substance: OLANZAPINE
     Dosage: 15 MILLIGRAM
     Route: 065
  5. OLANZAPINE [Suspect]
     Active Substance: OLANZAPINE
     Dosage: 15 MG, DAILY (1 PIECE EVERY EVENING)
     Dates: start: 2011
  6. MODERNA COVID-19 VACCINE [Suspect]
     Active Substance: ELASOMERAN
     Indication: Product used for unknown indication
     Dosage: UNK UNK, UNKNOWN (MRNA VACCINE)
     Route: 065
     Dates: start: 2021, end: 2021
  7. MODERNA COVID-19 VACCINE [Suspect]
     Active Substance: ELASOMERAN
     Dosage: UNK UNK, UNKNOWN (MRNA VACCINE)
     Route: 065
     Dates: start: 202201, end: 202201
  8. CLOZAPINE [Suspect]
     Active Substance: CLOZAPINE
     Indication: Psychotic disorder
     Dosage: 375 MILLIGRAM
     Route: 065
  9. CLOZAPINE [Suspect]
     Active Substance: CLOZAPINE
     Indication: Bipolar disorder
     Dosage: 300 MILLIGRAM
     Route: 065
  10. CLOZAPINE [Suspect]
     Active Substance: CLOZAPINE
     Dosage: 250 MILLIGRAM
     Route: 065
  11. CLOZAPINE [Suspect]
     Active Substance: CLOZAPINE
     Dosage: 400 MILLIGRAM
     Route: 065
     Dates: start: 2007
  12. VALPROIC ACID [Concomitant]
     Active Substance: VALPROIC ACID
     Indication: Bipolar disorder
     Dosage: 1500 MILLIGRAM
     Route: 065
     Dates: start: 201103
  13. VALPROIC ACID [Concomitant]
     Active Substance: VALPROIC ACID
     Dosage: UNK UNK, UNKNOWN
     Route: 065
     Dates: start: 2011
  14. VALPROIC ACID [Concomitant]
     Active Substance: VALPROIC ACID
     Indication: Bipolar disorder
     Dosage: 1200 MILLIGRAM
     Route: 065
  15. VALPROIC ACID [Concomitant]
     Active Substance: VALPROIC ACID
     Dosage: 15 MILLIGRAM
     Route: 065
     Dates: start: 2011
  16. VALPROIC ACID [Concomitant]
     Active Substance: VALPROIC ACID
     Dosage: 1500 MILLIGRAM
     Route: 065
     Dates: start: 201103
  17. LITHIUM SULFATE [Concomitant]
     Active Substance: LITHIUM SULFATE
     Indication: Product used for unknown indication
     Dosage: UNK, (3 PCS)

REACTIONS (4)
  - Petit mal epilepsy [Unknown]
  - Seizure [Recovered/Resolved]
  - Antipsychotic drug level increased [Unknown]
  - Overdose [Unknown]

NARRATIVE: CASE EVENT DATE: 20210301
